FAERS Safety Report 6771520-X (Version None)
Quarter: 2010Q2

REPORT INFORMATION
  Report Type: 
  Country: None (occurrence: None)
  Receive Date: 20100616
  Receipt Date: 20100609
  Transmission Date: 20101027
  Serious: Yes (Hospitalization)
  Sender: FDA-Public Use
  Company Number: FR-B.I. PHARMACEUTICALS,INC./RIDGEFIELD-2010-FF-00489FF

PATIENT
  Sex: Female

DRUGS (15)
  1. MICARDIS [Suspect]
     Route: 048
     Dates: end: 20100518
  2. MICARDIS [Suspect]
     Route: 048
     Dates: start: 20100526
  3. CLAMOXYL [Suspect]
     Dosage: 8 G
     Route: 048
     Dates: start: 20100511, end: 20100521
  4. GENTAMICINE [Suspect]
     Dosage: 420 MG
     Route: 048
     Dates: start: 20100511, end: 20100512
  5. COLCHIMAX [Suspect]
     Indication: GOUT
     Route: 048
     Dates: end: 20100518
  6. COLCHIMAX [Suspect]
     Route: 048
     Dates: start: 20100525
  7. ALDACTONE [Suspect]
     Route: 048
     Dates: end: 20100518
  8. ALDACTONE [Suspect]
     Route: 048
     Dates: start: 20100526
  9. ZYLORIC [Suspect]
     Route: 048
     Dates: end: 20100518
  10. ZYLORIC [Suspect]
     Route: 048
     Dates: start: 20100525
  11. KALEORID [Suspect]
     Route: 048
     Dates: end: 20100518
  12. PREVISCAN [Concomitant]
     Route: 048
  13. TENORMIN [Concomitant]
     Route: 048
  14. HEMIGOXINE NATIVELLE [Concomitant]
     Route: 048
  15. LASIX [Concomitant]
     Route: 048

REACTIONS (7)
  - CONDITION AGGRAVATED [None]
  - LISTERIA ENCEPHALITIS [None]
  - PROTEINURIA [None]
  - PYELONEPHRITIS [None]
  - PYREXIA [None]
  - RENAL FAILURE ACUTE [None]
  - URINARY TRACT INFECTION [None]
